FAERS Safety Report 20497496 (Version 2)
Quarter: 2022Q1

REPORT INFORMATION
  Report Type: Spontaneous
  Country: JP (occurrence: JP)
  Receive Date: 20220221
  Receipt Date: 20220317
  Transmission Date: 20220423
  Serious: Yes (Death)
  Sender: FDA-Public Use
  Company Number: JP-JNJFOC-20220233224

PATIENT
  Age: 57 Year
  Sex: Female

DRUGS (81)
  1. TRACLEER [Suspect]
     Active Substance: BOSENTAN
     Indication: Skin ulcer
     Route: 048
     Dates: start: 20150901, end: 20150928
  2. TRACLEER [Suspect]
     Active Substance: BOSENTAN
     Route: 048
     Dates: start: 20150929, end: 20171026
  3. TRACLEER [Suspect]
     Active Substance: BOSENTAN
     Route: 048
     Dates: start: 20171027, end: 20180118
  4. TRACLEER [Suspect]
     Active Substance: BOSENTAN
     Dosage: DOSE UNKNOWN
     Route: 048
  5. LANSOPRAZOLE [Concomitant]
     Active Substance: LANSOPRAZOLE
     Indication: Gastrooesophageal reflux disease
     Route: 048
     Dates: start: 20120724, end: 20160314
  6. PREDNISOLONE [Concomitant]
     Active Substance: PREDNISOLONE
     Indication: Systemic scleroderma
     Route: 048
     Dates: start: 20150707, end: 20160509
  7. PREDNISOLONE [Concomitant]
     Active Substance: PREDNISOLONE
     Route: 048
     Dates: start: 20160510, end: 20170403
  8. PREDNISOLONE [Concomitant]
     Active Substance: PREDNISOLONE
     Route: 048
     Dates: start: 20170404, end: 20170605
  9. PREDNISOLONE [Concomitant]
     Active Substance: PREDNISOLONE
     Route: 048
     Dates: start: 20170606, end: 20170911
  10. PREDNISOLONE [Concomitant]
     Active Substance: PREDNISOLONE
     Route: 048
     Dates: start: 20170912, end: 20171027
  11. PREDNISOLONE [Concomitant]
     Active Substance: PREDNISOLONE
     Route: 048
     Dates: start: 20171028, end: 20171030
  12. PREDNISOLONE [Concomitant]
     Active Substance: PREDNISOLONE
     Route: 048
     Dates: start: 20171031, end: 20171109
  13. PREDNISOLONE [Concomitant]
     Active Substance: PREDNISOLONE
     Route: 048
     Dates: start: 20171110, end: 20171123
  14. PREDNISOLONE [Concomitant]
     Active Substance: PREDNISOLONE
     Route: 048
     Dates: start: 20171124, end: 20171207
  15. PREDNISOLONE [Concomitant]
     Active Substance: PREDNISOLONE
     Route: 048
     Dates: start: 20171208, end: 20171227
  16. PREDNISOLONE [Concomitant]
     Active Substance: PREDNISOLONE
     Route: 048
     Dates: start: 20171228, end: 20180105
  17. PREDNISOLONE [Concomitant]
     Active Substance: PREDNISOLONE
     Route: 048
     Dates: start: 20180106, end: 20180110
  18. PREDNISOLONE [Concomitant]
     Active Substance: PREDNISOLONE
     Route: 048
     Dates: start: 20180111, end: 20180115
  19. PREDNISOLONE [Concomitant]
     Active Substance: PREDNISOLONE
     Route: 048
     Dates: start: 20180116, end: 20180120
  20. PREDNISOLONE [Concomitant]
     Active Substance: PREDNISOLONE
     Route: 048
     Dates: start: 20180302
  21. BERAPROST SODIUM [Concomitant]
     Active Substance: BERAPROST SODIUM
     Indication: Skin ulcer
     Route: 048
     Dates: start: 20131203, end: 20171113
  22. AMLODIPINE [Concomitant]
     Active Substance: AMLODIPINE BESYLATE
     Indication: Hypertension
     Route: 048
     Dates: start: 20141209, end: 20171030
  23. AMLODIPINE [Concomitant]
     Active Substance: AMLODIPINE BESYLATE
     Indication: Hypertension
     Route: 048
     Dates: start: 20171103, end: 20171109
  24. BROTIZOLAM [Concomitant]
     Active Substance: BROTIZOLAM
     Indication: Insomnia
     Route: 048
     Dates: start: 20110322, end: 20171115
  25. ALPROSTADIL [Concomitant]
     Active Substance: ALPROSTADIL
     Indication: Skin ulcer
     Dosage: Q.S.
     Route: 061
     Dates: start: 20101220, end: 20170703
  26. ALPROSTADIL [Concomitant]
     Active Substance: ALPROSTADIL
     Dosage: Q.S.
     Route: 061
     Dates: start: 20180406, end: 20180830
  27. U-PASTA [Concomitant]
     Indication: Skin ulcer
     Dosage: Q.S.
     Route: 061
     Dates: start: 20151124
  28. LULICONAZOLE [Concomitant]
     Active Substance: LULICONAZOLE
     Indication: Skin ulcer
     Dosage: Q.S.
     Route: 061
     Dates: start: 20151222
  29. VONOPRAZAN FUMARATE [Concomitant]
     Active Substance: VONOPRAZAN FUMARATE
     Indication: Gastrooesophageal reflux disease
     Route: 048
     Dates: start: 20160315, end: 20160411
  30. VONOPRAZAN FUMARATE [Concomitant]
     Active Substance: VONOPRAZAN FUMARATE
     Indication: Gastrooesophageal reflux disease
     Route: 048
     Dates: start: 20160412, end: 20171227
  31. VONOPRAZAN FUMARATE [Concomitant]
     Active Substance: VONOPRAZAN FUMARATE
     Indication: Gastrooesophageal reflux disease
     Route: 048
     Dates: start: 20180307, end: 20180308
  32. VONOPRAZAN FUMARATE [Concomitant]
     Active Substance: VONOPRAZAN FUMARATE
     Indication: Gastrooesophageal reflux disease
     Route: 048
     Dates: start: 20180309, end: 20180313
  33. VONOPRAZAN FUMARATE [Concomitant]
     Active Substance: VONOPRAZAN FUMARATE
     Indication: Gastrooesophageal reflux disease
     Route: 048
     Dates: start: 20180314
  34. SODIUM FERROUS CITRATE [Concomitant]
     Active Substance: SODIUM FERROUS CITRATE
     Indication: Anaemia
     Route: 048
     Dates: start: 20160119, end: 20161107
  35. SODIUM FERROUS CITRATE [Concomitant]
     Active Substance: SODIUM FERROUS CITRATE
     Indication: Anaemia
     Route: 048
     Dates: start: 20170704, end: 20170911
  36. GASMOTIN [LEVOSULPIRIDE] [Concomitant]
     Indication: Gastrooesophageal reflux disease
     Route: 048
     Dates: start: 20160315, end: 20180112
  37. DENOSUMAB [Concomitant]
     Active Substance: DENOSUMAB
     Indication: Osteoporosis
     Route: 042
     Dates: start: 20170704
  38. CALCIUM CARBONATE\CHOLECALCIFEROL\MAGNESIUM CARBONATE [Concomitant]
     Active Substance: CALCIUM CARBONATE\CHOLECALCIFEROL\MAGNESIUM CARBONATE
     Indication: Prophylaxis
     Route: 048
     Dates: start: 20170704, end: 20171113
  39. KEFLEX [Concomitant]
     Active Substance: CEPHALEXIN
     Indication: Localised infection
     Route: 048
     Dates: start: 20170808, end: 20170813
  40. KEFLEX [Concomitant]
     Active Substance: CEPHALEXIN
     Indication: Localised infection
     Route: 048
     Dates: start: 20170814, end: 20170826
  41. ALLEGRA [FEXOFENADINE HYDROCHLORIDE] [Concomitant]
     Indication: Drug eruption
     Route: 048
     Dates: start: 20170814, end: 20170902
  42. BETAMETHASONE DIPROPIONATE [Concomitant]
     Active Substance: BETAMETHASONE DIPROPIONATE
     Indication: Drug eruption
     Dosage: Q.S.
     Route: 061
     Dates: start: 20170814
  43. BETAMETHASONE DIPROPIONATE [Concomitant]
     Active Substance: BETAMETHASONE DIPROPIONATE
     Dosage: Q.S.
     Route: 061
     Dates: start: 20171117, end: 20171120
  44. FEXOFENADINE HYDROCHLORIDE [Concomitant]
     Active Substance: FEXOFENADINE HYDROCHLORIDE
     Indication: Drug eruption
     Route: 048
     Dates: start: 20170814, end: 20170815
  45. FEXOFENADINE HYDROCHLORIDE [Concomitant]
     Active Substance: FEXOFENADINE HYDROCHLORIDE
     Indication: Drug eruption
     Route: 048
     Dates: start: 20170816, end: 20170822
  46. LUCONAC [Concomitant]
     Indication: Prophylaxis
     Dosage: Q.S.
     Route: 065
     Dates: start: 20170912, end: 20180508
  47. KAYEXALATE [Concomitant]
     Active Substance: SODIUM POLYSTYRENE SULFONATE
     Indication: Prophylaxis
     Dosage: 2 PACKAGES
     Route: 048
     Dates: start: 20171026, end: 20171026
  48. KAYEXALATE [Concomitant]
     Active Substance: SODIUM POLYSTYRENE SULFONATE
     Indication: Prophylaxis
     Dosage: 2 PACKAGES
     Route: 048
     Dates: start: 20171027, end: 20171030
  49. CALTAN [Concomitant]
     Active Substance: CALCIUM CARBONATE
     Indication: Prophylaxis
     Route: 048
     Dates: start: 20171026, end: 20171027
  50. CALTAN [Concomitant]
     Active Substance: CALCIUM CARBONATE
     Route: 048
     Dates: start: 20171028, end: 20171030
  51. CAPTOPRIL [Concomitant]
     Active Substance: CAPTOPRIL
     Indication: Hypertension
     Route: 048
     Dates: start: 20171026, end: 20171026
  52. CAPTOPRIL [Concomitant]
     Active Substance: CAPTOPRIL
     Indication: Hypertension
     Route: 048
     Dates: start: 20171027, end: 20171027
  53. CAPTOPRIL [Concomitant]
     Active Substance: CAPTOPRIL
     Indication: Hypertension
     Route: 048
     Dates: start: 20171028, end: 20171028
  54. CAPTOPRIL [Concomitant]
     Active Substance: CAPTOPRIL
     Indication: Hypertension
     Route: 048
     Dates: start: 20171029, end: 20171108
  55. NICARDIPINE HYDROCHLORIDE [Concomitant]
     Active Substance: NICARDIPINE HYDROCHLORIDE
     Indication: Hypertension
     Dosage: 1MG/H
     Route: 042
     Dates: start: 20171028, end: 20171110
  56. TELMISARTAN [Concomitant]
     Active Substance: TELMISARTAN
     Indication: Hypertension
     Route: 048
     Dates: start: 20171101, end: 20171102
  57. TELMISARTAN [Concomitant]
     Active Substance: TELMISARTAN
     Indication: Hypertension
     Route: 048
     Dates: start: 20171103, end: 20171116
  58. TELMISARTAN [Concomitant]
     Active Substance: TELMISARTAN
     Indication: Hypertension
     Route: 048
     Dates: start: 20171117, end: 20180119
  59. LEVOTHYROXINE SODIUM [Concomitant]
     Active Substance: LEVOTHYROXINE SODIUM
     Indication: Prophylaxis
     Route: 048
     Dates: start: 20171107, end: 20171130
  60. LEVOTHYROXINE SODIUM [Concomitant]
     Active Substance: LEVOTHYROXINE SODIUM
     Route: 048
     Dates: start: 20171201, end: 20180118
  61. NIFEDIPINE [Concomitant]
     Active Substance: NIFEDIPINE
     Indication: Hypertension
     Route: 048
     Dates: start: 20171108, end: 20171109
  62. NIFEDIPINE [Concomitant]
     Active Substance: NIFEDIPINE
     Route: 048
     Dates: start: 20171110, end: 20171113
  63. NIFEDIPINE [Concomitant]
     Active Substance: NIFEDIPINE
     Route: 048
     Dates: start: 20171114, end: 20180118
  64. ENALAPRIL MALEATE [Concomitant]
     Active Substance: ENALAPRIL MALEATE
     Indication: Hypertension
     Route: 048
     Dates: start: 20171108, end: 20171109
  65. ENALAPRIL MALEATE [Concomitant]
     Active Substance: ENALAPRIL MALEATE
     Indication: Hypertension
     Route: 048
     Dates: start: 20171110, end: 20180118
  66. SODIUM FERROUS CITRATE [Concomitant]
     Active Substance: SODIUM FERROUS CITRATE
     Indication: Iron deficiency anaemia
     Route: 048
     Dates: start: 20171110, end: 20171113
  67. OLOPATADINE HYDROCHLORIDE [Concomitant]
     Active Substance: OLOPATADINE HYDROCHLORIDE
     Indication: Prophylaxis
     Route: 048
     Dates: start: 20171117, end: 20171120
  68. NEXIUM [Concomitant]
     Active Substance: ESOMEPRAZOLE MAGNESIUM
     Indication: Gastrooesophageal reflux disease
     Route: 048
     Dates: start: 20171122, end: 20171207
  69. DILTIAZEM HYDROCHLORIDE [Concomitant]
     Active Substance: DILTIAZEM HYDROCHLORIDE
     Indication: Hypertension
     Route: 048
     Dates: start: 20171122, end: 20171130
  70. DILTIAZEM HYDROCHLORIDE [Concomitant]
     Active Substance: DILTIAZEM HYDROCHLORIDE
     Indication: Hypertension
     Route: 048
     Dates: start: 20171201, end: 20171229
  71. RABEPRAZOLE SODIUM [Concomitant]
     Active Substance: RABEPRAZOLE SODIUM
     Indication: Gastrooesophageal reflux disease
     Route: 048
     Dates: start: 20171205, end: 20171207
  72. RABEPRAZOLE SODIUM [Concomitant]
     Active Substance: RABEPRAZOLE SODIUM
     Route: 048
     Dates: start: 20171208, end: 20171221
  73. FAMOTIDINE [Concomitant]
     Active Substance: FAMOTIDINE
     Indication: Gastrooesophageal reflux disease
     Route: 048
     Dates: start: 20171228, end: 20180118
  74. GASTER [Concomitant]
     Active Substance: FAMOTIDINE
     Indication: Gastrooesophageal reflux disease
     Route: 048
     Dates: start: 20180302, end: 20180306
  75. BERAPROST SODIUM [Concomitant]
     Active Substance: BERAPROST SODIUM
     Indication: Prophylaxis
     Route: 048
     Dates: start: 20180509
  76. LEVOFLOXACIN [Concomitant]
     Active Substance: LEVOFLOXACIN
     Indication: Prophylaxis
     Route: 048
     Dates: start: 20180712, end: 20180712
  77. LEVOFLOXACIN [Concomitant]
     Active Substance: LEVOFLOXACIN
     Route: 048
     Dates: start: 20180714, end: 20180806
  78. LEVOFLOXACIN [Concomitant]
     Active Substance: LEVOFLOXACIN
     Route: 048
     Dates: start: 20170814, end: 20170826
  79. EFINACONAZOLE [Concomitant]
     Active Substance: EFINACONAZOLE
     Indication: Prophylaxis
     Dosage: Q.S.
     Route: 065
     Dates: start: 20180717
  80. HERBALS [Concomitant]
     Active Substance: HERBALS
     Indication: Prophylaxis
     Route: 048
     Dates: start: 20170912, end: 20171123
  81. HERBALS [Concomitant]
     Active Substance: HERBALS
     Dosage: 2.5G IN THE MORNING ,5G IN THE AFTERNOON,5G IN THE EVENING
     Route: 048
     Dates: start: 20171124, end: 20171227

REACTIONS (2)
  - Infection [Fatal]
  - Renal failure [Fatal]
